FAERS Safety Report 7789121-3 (Version None)
Quarter: 2011Q3

REPORT INFORMATION
  Report Type: 
  Country: None (occurrence: None)
  Receive Date: 20110930
  Receipt Date: 20110922
  Transmission Date: 20111222
  Serious: Yes (Hospitalization)
  Sender: FDA-Public Use
  Company Number: US-UCBSA-040580

PATIENT
  Sex: Female
  Weight: 55 kg

DRUGS (15)
  1. VITAMIN B-12 [Concomitant]
     Route: 048
     Dates: start: 20100901
  2. LOVENOX [Concomitant]
  3. CLARITHROMYCIN [Concomitant]
     Dosage: FOR 10 DAYS
     Route: 048
  4. CIMZIA [Suspect]
     Indication: CROHN'S DISEASE
     Route: 058
     Dates: start: 20101012
  5. FERROL [Concomitant]
     Dosage: LIQUID, TWO TABLE SPOONS AS NECESSARY
     Route: 048
  6. M.V.I. [Concomitant]
     Dosage: 2 TABLETS
     Route: 048
     Dates: start: 20110701
  7. PURINETHOL [Concomitant]
  8. AVELOX [Concomitant]
  9. TYLENOL-500 [Concomitant]
  10. COD LIVER OIL [Concomitant]
     Route: 048
     Dates: start: 20100901
  11. ZOFRAN [Concomitant]
  12. AMBIEN [Concomitant]
  13. PROTONIX [Concomitant]
  14. MERCAPTOPURINE [Concomitant]
     Dates: start: 20001121
  15. ASCORBIC ACID [Concomitant]
     Route: 048
     Dates: start: 20100901

REACTIONS (1)
  - PNEUMONIA [None]
